FAERS Safety Report 5119198-5 (Version None)
Quarter: 2006Q4

REPORT INFORMATION
  Report Type: 
  Country: None (occurrence: None)
  Receive Date: 20061003
  Receipt Date: 20060926
  Transmission Date: 20070319
  Serious: Yes (Death, Hospitalization)
  Sender: FDA-Public Use
  Company Number: 2006GB01707

PATIENT
  Age: 79 Year
  Sex: Female
  Weight: 70 kg

DRUGS (12)
  1. OMEPRAZOLE [Suspect]
     Indication: GASTROOESOPHAGEAL REFLUX DISEASE
     Route: 048
     Dates: start: 20060421, end: 20060524
  2. ALLOPURINOL [Concomitant]
     Route: 048
     Dates: start: 20060328
  3. ASPIRIN [Concomitant]
     Route: 048
  4. CO-DYDRAMOL [Concomitant]
     Route: 048
  5. ISOSORBIDE MONONITRATE [Concomitant]
     Route: 048
  6. LACTULOSE [Concomitant]
  7. ALBUTEROL SPIROS [Concomitant]
     Route: 055
  8. SERETIDE [Concomitant]
     Route: 048
  9. SIMVASTATIN [Concomitant]
     Route: 048
  10. SPIRONOLACTONE [Concomitant]
     Route: 048
  11. TIOTROPIUM BROMIDE [Concomitant]
     Route: 055
  12. THEOPHYLLINE [Concomitant]

REACTIONS (8)
  - BACK PAIN [None]
  - ERYTHEMA [None]
  - FEELING HOT [None]
  - INCONTINENCE [None]
  - LIP ULCERATION [None]
  - MALAISE [None]
  - PALLOR [None]
  - STEVENS-JOHNSON SYNDROME [None]
